FAERS Safety Report 22385032 (Version 1)
Quarter: 2023Q2

REPORT INFORMATION
  Report Type: Spontaneous
  Country: US (occurrence: None)
  Receive Date: 20230527
  Receipt Date: 20230527
  Transmission Date: 20230722
  Serious: No
  Sender: FDA-Public Use
  Company Number: None

PATIENT
  Sex: Male
  Weight: 84.82 kg

DRUGS (2)
  1. GLEOSTINE [Suspect]
     Active Substance: LOMUSTINE
     Indication: Rash
     Dosage: 80 MG DAY 1 ORAL- 6 WEEK CYCLE?
     Route: 048
     Dates: start: 202303
  2. GLEOSTINE [Suspect]
     Active Substance: LOMUSTINE
     Indication: Rash
     Dosage: 100 MG DAY ORAL- 6 WEEK CYCLE?
     Route: 048
     Dates: start: 202303

REACTIONS (2)
  - Disease progression [None]
  - Therapy cessation [None]
